FAERS Safety Report 7962295-7 (Version None)
Quarter: 2011Q4

REPORT INFORMATION
  Report Type: 
  Country: None (occurrence: None)
  Receive Date: 20111207
  Receipt Date: 20111206
  Transmission Date: 20120403
  Serious: Yes (Death)
  Sender: FDA-Public Use
  Company Number: PHHY2011CA104212

PATIENT
  Sex: Male

DRUGS (6)
  1. WELLBUTRIN [Concomitant]
     Dosage: 150 MG, QD
  2. XANAX [Concomitant]
     Dosage: 2.5 MG, UNK
  3. ZOLOFT [Concomitant]
     Dosage: 200 MG, QD
  4. SEROQUEL XR [Concomitant]
     Dosage: 300 MG, UNK
  5. CLOZARIL [Suspect]
     Indication: SCHIZOPHRENIA
     Dosage: 600 MG,
     Dates: start: 20070719, end: 20111114
  6. RISPERDAL CONSTA [Concomitant]
     Dosage: 50 MG, FOR 2 WEEKS

REACTIONS (1)
  - MYOCARDIAL INFARCTION [None]
